FAERS Safety Report 21519133 (Version 1)
Quarter: 2022Q4

REPORT INFORMATION
  Report Type: Spontaneous
  Country: US (occurrence: US)
  Receive Date: 20221028
  Receipt Date: 20221028
  Transmission Date: 20230112
  Serious: No
  Sender: FDA-Public Use
  Company Number: ALC2022US004187

PATIENT
  Age: 75 Year
  Sex: Female

DRUGS (3)
  1. INVELTYS [Suspect]
     Active Substance: LOTEPREDNOL ETABONATE
     Indication: Cataract operation
     Dosage: 1 GTT, 2X/DAY
     Route: 047
  2. PROLENSA [Concomitant]
     Active Substance: BROMFENAC SODIUM
     Indication: Product used for unknown indication
     Dosage: 1 GTT, 1X/DAY
     Route: 065
  3. POLYMYXIN [Concomitant]
     Active Substance: POLYMYXIN
     Indication: Product used for unknown indication
     Dosage: 1 GTT, 4X/DAY
     Route: 065

REACTIONS (2)
  - Product dose omission issue [Not Recovered/Not Resolved]
  - Product quality issue [Not Recovered/Not Resolved]

NARRATIVE: CASE EVENT DATE: 20220216
